FAERS Safety Report 13302761 (Version 1)
Quarter: 2017Q1

REPORT INFORMATION
  Report Type: Spontaneous
  Country: SI (occurrence: SI)
  Receive Date: 20170307
  Receipt Date: 20170307
  Transmission Date: 20170428
  Serious: Yes (Other)
  Sender: FDA-Public Use
  Company Number: SI-BAYER-2017-038287

PATIENT
  Age: 75 Year
  Sex: Male

DRUGS (3)
  1. ASPIRIN PROTECT 100 MG [Suspect]
     Active Substance: ASPIRIN
     Indication: ATRIAL FIBRILLATION
     Dosage: UNK
     Dates: end: 201509
  2. ASPIRIN PROTECT 100 MG [Suspect]
     Active Substance: ASPIRIN
     Indication: ATRIAL FIBRILLATION
     Dosage: UNK
     Dates: start: 201601
  3. ANTILIPID [CLOFIBRATE] [Concomitant]
     Dosage: UNK

REACTIONS (6)
  - Detachment of retinal pigment epithelium [None]
  - Macular fibrosis [None]
  - Choroidal neovascularisation [None]
  - Subretinal fluid [None]
  - Retinal haemorrhage [None]
  - Macular degeneration [None]

NARRATIVE: CASE EVENT DATE: 20150602
